FAERS Safety Report 6252126-8 (Version None)
Quarter: 2009Q2

REPORT INFORMATION
  Report Type: 
  Country: None (occurrence: None)
  Receive Date: 20090630
  Receipt Date: 20060727
  Transmission Date: 20091009
  Serious: Yes (Death, Hospitalization)
  Sender: FDA-Public Use
  Company Number: US-ROCHE-639123

PATIENT
  Sex: Male

DRUGS (4)
  1. ENFUVIRTIDE [Suspect]
     Route: 065
     Dates: start: 20050708, end: 20060829
  2. SUSTIVA [Concomitant]
     Route: 065
     Dates: start: 20020510, end: 20060829
  3. VIDEX [Concomitant]
     Dates: start: 20020510, end: 20060829
  4. VIREAD [Concomitant]
     Dates: start: 20020310, end: 20060829

REACTIONS (5)
  - ANAEMIA [None]
  - CARDIAC FAILURE CONGESTIVE [None]
  - HIV INFECTION [None]
  - RENAL AMYLOIDOSIS [None]
  - RENAL FAILURE ACUTE [None]
